FAERS Safety Report 20017443 (Version 2)
Quarter: 2022Q3

REPORT INFORMATION
  Report Type: Spontaneous
  Country: FR (occurrence: FR)
  Receive Date: 20211030
  Receipt Date: 20220825
  Transmission Date: 20221026
  Serious: Yes (Hospitalization)
  Sender: FDA-Public Use
  Company Number: None

PATIENT
  Age: 63 Year
  Sex: Male
  Weight: 100 kg

DRUGS (5)
  1. ACYCLOVIR [Suspect]
     Active Substance: ACYCLOVIR
     Indication: Guillain-Barre syndrome
     Dosage: 960 MG
     Route: 042
     Dates: start: 20210627, end: 20210627
  2. TRAMADOL [Suspect]
     Active Substance: TRAMADOL
     Indication: Guillain-Barre syndrome
     Dosage: 150 MG
     Route: 048
     Dates: start: 20210627, end: 20210628
  3. INTRATECT [Suspect]
     Active Substance: HUMAN IMMUNOGLOBULIN G
     Indication: Guillain-Barre syndrome
     Dosage: 40 GRAM
     Route: 042
     Dates: start: 20210627, end: 20210628
  4. LOVENOX [Suspect]
     Active Substance: ENOXAPARIN SODIUM
     Indication: Product used for unknown indication
     Dosage: 2000 IU
     Route: 058
     Dates: start: 20210627, end: 20210627
  5. JANSSEN COVID-19 VACCINE [Suspect]
     Active Substance: AD26.COV2.S
     Indication: COVID-19 immunisation
     Dosage: (AD26.COV2-S [RECOMBINANT])01.3, 1 DF, FREQUENCY 1 TOTAL, THERAPY END DATE: NOT ASKED
     Dates: start: 20210506

REACTIONS (2)
  - Tubulointerstitial nephritis [Recovered/Resolved]
  - Nephrotic syndrome [Recovered/Resolved]

NARRATIVE: CASE EVENT DATE: 20210628
